FAERS Safety Report 7933556-2 (Version None)
Quarter: 2011Q4

REPORT INFORMATION
  Report Type: 
  Country: None (occurrence: None)
  Receive Date: 20111122
  Receipt Date: 20111116
  Transmission Date: 20120403
  Serious: Yes (Hospitalization)
  Sender: FDA-Public Use
  Company Number: US-AMGEN-USASP2011060443

PATIENT
  Sex: Male

DRUGS (3)
  1. ENBREL [Suspect]
     Indication: PSORIATIC ARTHROPATHY
     Dosage: 25 MG, 2 TIMES/WK
     Dates: start: 20060101, end: 20111110
  2. ENBREL [Suspect]
  3. ENBREL [Suspect]
     Indication: PSORIASIS

REACTIONS (9)
  - MYOCARDIAL INFARCTION [None]
  - EXOSTOSIS [None]
  - STRESS [None]
  - RETIREMENT [None]
  - DIVORCED [None]
  - OSTEOARTHRITIS [None]
  - DENTAL CARIES [None]
  - DENTAL IMPLANTATION [None]
  - TOOTH ABSCESS [None]
